FAERS Safety Report 9349044 (Version 2)
Quarter: 2013Q3

REPORT INFORMATION
  Report Type: Report from Study
  Country: US (occurrence: US)
  Receive Date: 20130614
  Receipt Date: 20130703
  Transmission Date: 20140515
  Serious: No
  Sender: FDA-Public Use
  Company Number: US-VERTEX PHARMACEUTICALS INC-2013-007058

PATIENT
  Age: 51 Year
  Sex: Female
  Weight: 70.3 kg

DRUGS (10)
  1. VX-950 (TELAPREVIR) [Suspect]
     Indication: HEPATITIS C
     Dosage: 750 MG, TID
     Route: 048
     Dates: start: 20130524
  2. PEGASYS [Suspect]
     Indication: HEPATITIS C
     Dosage: 180 ?G, QW
     Route: 058
     Dates: start: 20130524
  3. RIBAVIRIN [Suspect]
     Indication: HEPATITIS C
     Dosage: 600 MG, BID
     Dates: start: 20130524
  4. OMEPRAZOLE [Concomitant]
  5. ALPRAZOLAM [Concomitant]
  6. METOPROLOL [Concomitant]
  7. CITALOPRAM [Concomitant]
  8. SPIRONOLACTONE [Concomitant]
  9. ANUSOL HC [Concomitant]
  10. FEMRING [Concomitant]

REACTIONS (2)
  - Diarrhoea [Not Recovered/Not Resolved]
  - Nausea [Not Recovered/Not Resolved]
